FAERS Safety Report 6801213-1 (Version None)
Quarter: 2010Q2

REPORT INFORMATION
  Report Type: 
  Country: None (occurrence: None)
  Receive Date: 20100629
  Receipt Date: 20100619
  Transmission Date: 20101027
  Serious: Yes (Other)
  Sender: FDA-Public Use
  Company Number: FR-PFIZER INC-2010078313

PATIENT
  Age: 63 Year
  Sex: Female

DRUGS (1)
  1. TAHOR [Suspect]
     Dosage: UNK
     Dates: start: 20000101

REACTIONS (3)
  - MYALGIA [None]
  - TENDON RUPTURE [None]
  - TENDONITIS [None]
